FAERS Safety Report 4360302-4 (Version None)
Quarter: 2004Q2

REPORT INFORMATION
  Report Type: 
  Country: None (occurrence: None)
  Receive Date: 20040519
  Receipt Date: 20040510
  Transmission Date: 20050107
  Serious: Yes (Hospitalization)
  Sender: FDA-Public Use
  Company Number: BE-JNJFOC-20040502445

PATIENT
  Age: 62 Year
  Sex: Male

DRUGS (4)
  1. REMICADE [Suspect]
     Route: 042
  2. REMICADE [Suspect]
     Indication: RHEUMATOID ARTHRITIS
     Route: 042
  3. LEDERTREXATE [Concomitant]
  4. PREDNISOLONE [Concomitant]

REACTIONS (8)
  - ABDOMINAL PAIN [None]
  - ABDOMINAL PAIN LOWER [None]
  - CHILLS [None]
  - CHOLECYSTITIS ACUTE [None]
  - CONSTIPATION [None]
  - MALAISE [None]
  - NAUSEA [None]
  - PYREXIA [None]
